FAERS Safety Report 6845949-5 (Version None)
Quarter: 2010Q3

REPORT INFORMATION
  Report Type: 
  Country: None (occurrence: None)
  Receive Date: 20100715
  Receipt Date: 20070829
  Transmission Date: 20110219
  Serious: No
  Sender: FDA-Public Use
  Company Number: US-PFIZER INC-2007073116

PATIENT
  Sex: Female
  Weight: 81.8 kg

DRUGS (5)
  1. CHANTIX [Suspect]
     Indication: SMOKING CESSATION THERAPY
     Dates: start: 20070701, end: 20070101
  2. VYTORIN [Concomitant]
  3. LISINOPRIL [Concomitant]
  4. NEXIUM [Concomitant]
  5. EVISTA [Concomitant]

REACTIONS (1)
  - NAUSEA [None]
